FAERS Safety Report 5443454-4 (Version None)
Quarter: 2007Q3

REPORT INFORMATION
  Report Type: 
  Country: None (occurrence: None)
  Receive Date: 20070905
  Receipt Date: 20070827
  Transmission Date: 20080115
  Serious: Yes (Hospitalization)
  Sender: FDA-Public Use
  Company Number: JP-MERCK-0708USA05854

PATIENT
  Age: 89 Year
  Sex: Female

DRUGS (4)
  1. PEPCID [Suspect]
     Indication: GASTRIC ULCER
     Route: 048
     Dates: start: 20070612, end: 20070710
  2. SEPAMIT [Concomitant]
     Route: 048
     Dates: start: 20050401, end: 20070710
  3. CALCIUM POLYCARBOPHIL [Concomitant]
     Route: 048
     Dates: start: 20051222, end: 20070710
  4. ARICEPT [Concomitant]
     Route: 048
     Dates: start: 20050612, end: 20070710

REACTIONS (2)
  - ANAEMIA [None]
  - THROMBOCYTOPENIA [None]
